FAERS Safety Report 7433662-5 (Version None)
Quarter: 2011Q2

REPORT INFORMATION
  Report Type: 
  Country: None (occurrence: None)
  Receive Date: 20110422
  Receipt Date: 20110413
  Transmission Date: 20111010
  Serious: Yes (Other)
  Sender: FDA-Public Use
  Company Number: GB-MERCK-1011GBR00100

PATIENT
  Age: 35 Year
  Sex: Male

DRUGS (4)
  1. ZOPICLONE [Concomitant]
     Route: 065
     Dates: start: 20110413
  2. ZOPICLONE [Concomitant]
     Route: 065
     Dates: start: 20101026
  3. PROPECIA [Suspect]
     Indication: ALOPECIA
     Route: 048
     Dates: start: 20101026, end: 20101101
  4. DEXTROAMPHETAMINE SULFATE [Concomitant]
     Route: 065

REACTIONS (5)
  - LOSS OF LIBIDO [None]
  - FEELING ABNORMAL [None]
  - ERECTION INCREASED [None]
  - SUICIDAL IDEATION [None]
  - ORGANIC ERECTILE DYSFUNCTION [None]
